FAERS Safety Report 10067380 (Version 1)
Quarter: 2014Q2

REPORT INFORMATION
  Report Type: Spontaneous
  Country: US (occurrence: US)
  Receive Date: 20140409
  Receipt Date: 20140409
  Transmission Date: 20141212
  Serious: No
  Sender: FDA-Public Use
  Company Number: US-JNJFOC-20140318045

PATIENT
  Age: 52 Year
  Sex: Female
  Weight: 57.61 kg

DRUGS (11)
  1. SANDOZ FENTANYL TRANSDERMAL SYSTEM [Suspect]
     Indication: PAIN
     Route: 062
     Dates: start: 201111
  2. PERCODAN [Concomitant]
     Indication: BREAKTHROUGH PAIN
     Route: 048
  3. ATIVAN [Concomitant]
     Indication: ANXIETY
     Route: 048
  4. ADDERALL [Concomitant]
     Indication: PAIN
     Route: 048
  5. CYMBALTA [Concomitant]
     Indication: DEPRESSION
     Route: 048
  6. ESTRADIOL [Concomitant]
     Indication: HORMONE THERAPY
     Route: 048
  7. AVAPRO [Concomitant]
     Indication: BLOOD PRESSURE
     Route: 048
  8. TEKTURNA [Concomitant]
     Indication: BLOOD PRESSURE
     Route: 048
  9. BYSTOLIC [Concomitant]
     Indication: BLOOD PRESSURE
     Route: 048
  10. ADVAIR [Concomitant]
     Indication: ASTHMA
     Route: 055
  11. ALBUTEROL [Concomitant]
     Indication: ASTHMA
     Route: 055

REACTIONS (5)
  - Drug administered at inappropriate site [Recovered/Resolved]
  - Malaise [Not Recovered/Not Resolved]
  - Sluggishness [Not Recovered/Not Resolved]
  - Wrong technique in drug usage process [Recovered/Resolved]
  - Product quality issue [Unknown]
